FAERS Safety Report 22815923 (Version 2)
Quarter: 2024Q3

REPORT INFORMATION
  Report Type: Report from Study
  Country: CA (occurrence: CA)
  Receive Date: 20230811
  Receipt Date: 20240709
  Transmission Date: 20241016
  Serious: Yes (Hospitalization)
  Sender: ABBVIE
  Company Number: CA-ABBVIE-5361964

PATIENT
  Age: 57 Year
  Sex: Female

DRUGS (1)
  1. SKYRIZI [Suspect]
     Active Substance: RISANKIZUMAB-RZAA
     Indication: Psoriasis
     Route: 058
     Dates: start: 20220825, end: 20230805

REACTIONS (8)
  - Dyspnoea [Unknown]
  - Haemorrhage [Unknown]
  - Lung disorder [Unknown]
  - Immunodeficiency [Unknown]
  - Dysphonia [Unknown]
  - Abdominal pain [Unknown]
  - Selective IgG subclass deficiency [Unknown]
  - Unevaluable event [Unknown]

NARRATIVE: CASE EVENT DATE: 20230801
